FAERS Safety Report 5132871-8 (Version None)
Quarter: 2006Q4

REPORT INFORMATION
  Report Type: 
  Country: None (occurrence: None)
  Receive Date: 20061023
  Receipt Date: 20061018
  Transmission Date: 20070319
  Serious: Yes (Life-Threatening, Other)
  Sender: FDA-Public Use
  Company Number: US-ELI_LILLY_AND_COMPANY-US200610003245

PATIENT
  Age: 9 Year
  Sex: Male

DRUGS (4)
  1. STRATTERA [Suspect]
     Indication: ATTENTION DEFICIT/HYPERACTIVITY DISORDER
     Dosage: 60 MG,
     Dates: start: 20050901
  2. STRATTERA [Suspect]
     Dosage: 20 MG, UNK
     Dates: start: 20060801
  3. STRATTERA [Suspect]
     Dosage: 40 MG, UNK
     Dates: start: 20060101, end: 20060101
  4. STRATTERA [Suspect]
     Dosage: 60 MG, UNK
     Dates: start: 20060101, end: 20060101

REACTIONS (3)
  - CONDUCT DISORDER [None]
  - IMPULSIVE BEHAVIOUR [None]
  - SUICIDE ATTEMPT [None]
